FAERS Safety Report 14869723 (Version 1)
Quarter: 2018Q2

REPORT INFORMATION
  Report Type: Spontaneous
  Country: US (occurrence: US)
  Receive Date: 20180423
  Receipt Date: 20180423
  Transmission Date: 20180711
  Serious: Yes (Hospitalization)
  Sender: FDA-Public Use
  Company Number: None

PATIENT
  Sex: Female

DRUGS (6)
  1. LETROZOLE. [Concomitant]
     Active Substance: LETROZOLE
  2. SMZ-TMP [Concomitant]
     Active Substance: SULFAMETHOXAZOLE\TRIMETHOPRIM
  3. BIOTIN [Concomitant]
     Active Substance: BIOTIN
  4. WOMEN^S MULTIVIT [Concomitant]
  5. KISQALI [Suspect]
     Active Substance: RIBOCICLIB
     Indication: BREAST CANCER FEMALE
     Dosage: 400/800 MG QD X3WKS, OFF 1WK PO
     Route: 048
  6. METOPROLOL. [Concomitant]
     Active Substance: METOPROLOL

REACTIONS (5)
  - Dry mouth [None]
  - Alopecia [None]
  - Constipation [None]
  - Chapped lips [None]
  - Full blood count decreased [None]
